FAERS Safety Report 19456763 (Version 1)
Quarter: 2021Q2

REPORT INFORMATION
  Report Type: Spontaneous
  Country: CA (occurrence: CA)
  Receive Date: 20210624
  Receipt Date: 20210624
  Transmission Date: 20210717
  Serious: Yes (Other)
  Sender: FDA-Public Use
  Company Number: CA-ROCHE-2854065

PATIENT
  Age: 36 Year
  Sex: Male

DRUGS (10)
  1. ABACAVIR SULFATE;DOLUTEGRAVIR SODIUM;LAMIVUDINE [Concomitant]
     Active Substance: ABACAVIR SULFATE\DOLUTEGRAVIR SODIUM\LAMIVUDINE
  2. RITUXIMAB. [Suspect]
     Active Substance: RITUXIMAB
     Indication: HIV INFECTION
     Route: 065
  3. COMPLERA [Concomitant]
     Active Substance: EMTRICITABINE\RILPIVIRINE HYDROCHLORIDE\TENOFOVIR DISOPROXIL FUMARATE
  4. ERGOCALCIFEROL. [Concomitant]
     Active Substance: ERGOCALCIFEROL
  5. FOLIC ACID. [Concomitant]
     Active Substance: FOLIC ACID
  6. ALLOPURINOL. [Concomitant]
     Active Substance: ALLOPURINOL
  7. IBUPROFEN. [Concomitant]
     Active Substance: IBUPROFEN
  8. RITUXIMAB. [Suspect]
     Active Substance: RITUXIMAB
     Indication: HIV INFECTION
     Route: 041
  9. RITUXIMAB. [Suspect]
     Active Substance: RITUXIMAB
     Indication: CASTLEMAN^S DISEASE
  10. RITUXIMAB. [Suspect]
     Active Substance: RITUXIMAB
     Indication: CASTLEMAN^S DISEASE

REACTIONS (8)
  - Neutrophil count decreased [Not Recovered/Not Resolved]
  - Skin oedema [Not Recovered/Not Resolved]
  - Splenomegaly [Not Recovered/Not Resolved]
  - Neutropenia [Not Recovered/Not Resolved]
  - Platelet count decreased [Not Recovered/Not Resolved]
  - Haemoglobin decreased [Not Recovered/Not Resolved]
  - Lung disorder [Not Recovered/Not Resolved]
  - Pleural effusion [Not Recovered/Not Resolved]
